FAERS Safety Report 9399255 (Version 1)
Quarter: 2013Q3

REPORT INFORMATION
  Report Type: Spontaneous
  Country: AU (occurrence: None)
  Receive Date: 20130709
  Receipt Date: 20130709
  Transmission Date: 20140515
  Serious: Yes (Hospitalization)
  Sender: FDA-Public Use
  Company Number: 1778832

PATIENT
  Age: 74 Year
  Sex: Female

DRUGS (9)
  1. CALCIUM FOLINATE [Suspect]
     Indication: COLON CANCER
     Dosage: ONE WEEK INTRAVENOUS (NOT OTHERWISE SPECIFIED)?
     Route: 042
     Dates: start: 20130319, end: 20130528
  2. OXALIPLATIN [Suspect]
     Indication: COLON CANCER
     Dosage: ONE WEEK INTRAVENOUS (NOT OTHERWISE SPECIFIED)?
     Route: 042
     Dates: start: 20130319, end: 20130528
  3. FLUOROURACIL [Suspect]
     Indication: COLON CANCER
     Dosage: ONE WEEK INTRAVENOUS (NOT OTHERWISE SPECIFIED)?
     Route: 042
     Dates: start: 20130319, end: 20130528
  4. BEVACIZUMAB [Suspect]
     Indication: COLON CANCER
     Dosage: ONE WEEK INTRAVENOUS (NOT OTHERWISE SPECIFIED)?
     Route: 042
     Dates: start: 20130319, end: 20130528
  5. (OMEPRAZOLE) [Concomitant]
  6. (METOCLOPRAMIDE) [Concomitant]
  7. (ONDANSETRON) [Concomitant]
  8. (SODIUM BICARBONATE) [Concomitant]
  9. (LOPERAMIDE) [Concomitant]

REACTIONS (3)
  - Neutropenia [None]
  - Confusional state [None]
  - Urinary tract infection [None]
